FAERS Safety Report 13880564 (Version 4)
Quarter: 2021Q3

REPORT INFORMATION
  Report Type: Other
  Country: CA (occurrence: CA)
  Receive Date: 20170818
  Receipt Date: 20210920
  Transmission Date: 20211014
  Serious: Yes (Hospitalization, Other)
  Sender: FDA-Public Use
  Company Number: CA-ROCHE-1743894

PATIENT
  Age: 52 Year
  Sex: Female

DRUGS (16)
  1. XOLAIR [Suspect]
     Active Substance: OMALIZUMAB
     Route: 058
     Dates: start: 20160714
  2. XOLAIR [Suspect]
     Active Substance: OMALIZUMAB
     Route: 058
     Dates: start: 20161020
  3. XOLAIR [Suspect]
     Active Substance: OMALIZUMAB
     Route: 058
     Dates: start: 20170406
  4. CYCLOSPORIN [Suspect]
     Active Substance: CYCLOSPORINE
     Indication: CHRONIC SPONTANEOUS URTICARIA
     Route: 065
  5. XOLAIR [Suspect]
     Active Substance: OMALIZUMAB
     Route: 058
     Dates: start: 20170209
  6. XOLAIR [Suspect]
     Active Substance: OMALIZUMAB
     Route: 058
     Dates: start: 20160915
  7. XOLAIR [Suspect]
     Active Substance: OMALIZUMAB
     Route: 058
     Dates: start: 20161215
  8. XOLAIR [Suspect]
     Active Substance: OMALIZUMAB
     Route: 058
     Dates: start: 20170112
  9. XOLAIR [Suspect]
     Active Substance: OMALIZUMAB
     Route: 058
     Dates: start: 20170601
  10. XOLAIR [Suspect]
     Active Substance: OMALIZUMAB
     Route: 058
     Dates: start: 20160616
  11. XOLAIR [Suspect]
     Active Substance: OMALIZUMAB
     Route: 058
     Dates: start: 20161110
  12. XOLAIR [Suspect]
     Active Substance: OMALIZUMAB
     Route: 058
     Dates: start: 20160412
  13. XOLAIR [Suspect]
     Active Substance: OMALIZUMAB
     Indication: CHRONIC SPONTANEOUS URTICARIA
     Route: 058
     Dates: start: 20160316, end: 20170601
  14. XOLAIR [Suspect]
     Active Substance: OMALIZUMAB
     Route: 058
     Dates: start: 20160519
  15. XOLAIR [Suspect]
     Active Substance: OMALIZUMAB
     Route: 058
     Dates: start: 20160818
  16. XOLAIR [Suspect]
     Active Substance: OMALIZUMAB
     Route: 058
     Dates: start: 20170504

REACTIONS (49)
  - Thrombosis [Unknown]
  - Coma [Unknown]
  - Chills [Unknown]
  - Pyrexia [Not Recovered/Not Resolved]
  - Cold sweat [Unknown]
  - Respiratory rate increased [Unknown]
  - Paraesthesia [Unknown]
  - Multiple sclerosis [Unknown]
  - Malaise [Unknown]
  - Rash pruritic [Unknown]
  - Feeling hot [Unknown]
  - Pruritus [Unknown]
  - Renal impairment [Unknown]
  - Respiratory arrest [Unknown]
  - Rectal haemorrhage [Unknown]
  - Aphonia [Unknown]
  - Asthenia [Unknown]
  - Dizziness [Unknown]
  - Eating disorder [Unknown]
  - Hepatic pain [Unknown]
  - Injection site mass [Unknown]
  - Tremor [Unknown]
  - Gait disturbance [Unknown]
  - Urticaria [Recovering/Resolving]
  - Diarrhoea [Unknown]
  - Hyperhidrosis [Unknown]
  - Amnesia [Unknown]
  - Nausea [Unknown]
  - Erythema [Unknown]
  - Spinal cord herniation [Unknown]
  - Pneumonia [Unknown]
  - Blood pressure increased [Not Recovered/Not Resolved]
  - Feeling cold [Unknown]
  - Influenza [Not Recovered/Not Resolved]
  - Erythema [Unknown]
  - Liver disorder [Unknown]
  - Oropharyngeal pain [Unknown]
  - Stress [Unknown]
  - Cough [Unknown]
  - Breast mass [Unknown]
  - Drug ineffective [Unknown]
  - Fatigue [Unknown]
  - Oxygen saturation decreased [Unknown]
  - Brain hypoxia [Unknown]
  - Cerebrovascular accident [Unknown]
  - Inappropriate schedule of product administration [Unknown]
  - Eczema [Unknown]
  - Gastroenteritis [Unknown]
  - Viral infection [Unknown]

NARRATIVE: CASE EVENT DATE: 20160316
